FAERS Safety Report 6578017-0 (Version None)
Quarter: 2010Q1

REPORT INFORMATION
  Report Type: 
  Country: None (occurrence: None)
  Receive Date: 20100211
  Receipt Date: 20091214
  Transmission Date: 20100710
  Serious: No
  Sender: FDA-Public Use
  Company Number: US-BRISTOL-MYERS SQUIBB COMPANY-14894356

PATIENT
  Age: 60 Year
  Sex: Female
  Weight: 91 kg

DRUGS (6)
  1. IXEMPRA KIT [Suspect]
     Indication: BREAST CANCER METASTATIC
     Dates: start: 20091208
  2. VICODIN [Concomitant]
  3. DEXAMETHASONE [Concomitant]
     Indication: PREMEDICATION
     Route: 042
  4. PEPCID [Concomitant]
     Indication: PREMEDICATION
  5. BENADRYL [Concomitant]
     Indication: PREMEDICATION
  6. ALOXI [Concomitant]
     Indication: PREMEDICATION

REACTIONS (4)
  - GAIT DISTURBANCE [None]
  - HYPOAESTHESIA [None]
  - PAIN [None]
  - RASH ERYTHEMATOUS [None]
